FAERS Safety Report 15309942 (Version 1)
Quarter: 2018Q3

REPORT INFORMATION
  Report Type: Spontaneous
  Country: US (occurrence: US)
  Receive Date: 20180823
  Receipt Date: 20180823
  Transmission Date: 20181010
  Serious: No
  Sender: FDA-Public Use
  Company Number: US-BAYER-2018-154590

PATIENT
  Age: 68 Year
  Sex: Male
  Weight: 88.44 kg

DRUGS (2)
  1. IRON [FERROUS SULFATE] [Concomitant]
     Dosage: 150 MG, QD
  2. MIRALAX [Suspect]
     Active Substance: POLYETHYLENE GLYCOL 3350
     Indication: GASTROINTESTINAL DISORDER
     Dosage: 1 DOSE TWICE A WEEK DOSE
     Route: 048
     Dates: start: 2016

REACTIONS (3)
  - Underdose [Unknown]
  - Inappropriate schedule of drug administration [Unknown]
  - Product physical consistency issue [Unknown]
